FAERS Safety Report 4859903-6 (Version None)
Quarter: 2005Q4

REPORT INFORMATION
  Report Type: 
  Country: None (occurrence: None)
  Receive Date: 20051215
  Receipt Date: 20051206
  Transmission Date: 20060501
  Serious: Yes (Life-Threatening, Hospitalization, Other)
  Sender: FDA-Public Use
  Company Number: 2005-10-1304

PATIENT
  Age: 46 Year
  Sex: Male
  Weight: 61.2356 kg

DRUGS (8)
  1. PROVENTIL [Suspect]
     Indication: ASTHMA
     Dosage: ORAL AER INH
     Route: 048
  2. NASACORT AQ [Suspect]
     Indication: SINUSITIS
     Dosage: 1 SPR/NAS AER SPRAY
     Route: 045
     Dates: start: 20050921, end: 20050921
  3. DIGOXIN [Concomitant]
  4. XOPENEX (LEVALBUTEROL HCL) [Concomitant]
  5. ASTELIN [Concomitant]
  6. ZANTAC [Concomitant]
  7. TOPROL-XL [Concomitant]
  8. COZAAR QD [Concomitant]

REACTIONS (7)
  - CARDIAC ARREST [None]
  - CONDITION AGGRAVATED [None]
  - DRUG HYPERSENSITIVITY [None]
  - FALL [None]
  - HEART RATE IRREGULAR [None]
  - REACTION TO DRUG EXCIPIENTS [None]
  - SINUSITIS [None]
